FAERS Safety Report 10415349 (Version 1)
Quarter: 2014Q3

REPORT INFORMATION
  Report Type: Spontaneous
  Country: US (occurrence: US)
  Receive Date: 20140828
  Receipt Date: 20140828
  Transmission Date: 20150326
  Serious: No
  Sender: FDA-Public Use
  Company Number: US-PFIZER INC-2014235718

PATIENT
  Age: 23 Year
  Sex: Male
  Weight: 77.1 kg

DRUGS (2)
  1. ADVIL [Suspect]
     Active Substance: IBUPROFEN
     Indication: HEADACHE
     Dosage: 200 MG, AS NEEDED (REPORTED AS HE WAS TAKING TWO TO THREE TIMES A DAY)
     Dates: start: 20140816
  2. ADVIL [Suspect]
     Active Substance: IBUPROFEN
     Indication: ANALGESIC THERAPY

REACTIONS (3)
  - Gastric disorder [Not Recovered/Not Resolved]
  - Dyspepsia [Not Recovered/Not Resolved]
  - Heart rate increased [Unknown]

NARRATIVE: CASE EVENT DATE: 201408
